FAERS Safety Report 5534430-1 (Version None)
Quarter: 2007Q4

REPORT INFORMATION
  Report Type: 
  Country: None (occurrence: None)
  Receive Date: 20071205
  Receipt Date: 20071127
  Transmission Date: 20080405
  Serious: Yes (Other)
  Sender: FDA-Public Use
  Company Number: A0677779A

PATIENT
  Age: 36 Year
  Sex: Female

DRUGS (3)
  1. LAMICTAL [Suspect]
     Indication: BIPOLAR DISORDER
     Dosage: 100MG UNKNOWN
     Route: 048
     Dates: start: 20070110, end: 20070301
  2. VALIUM [Concomitant]
     Dosage: 10MG TWICE PER DAY
     Route: 048
  3. PROZAC [Concomitant]
     Dosage: 30MG PER DAY
     Route: 048
     Dates: end: 20070130

REACTIONS (5)
  - ATROPHY [None]
  - ILL-DEFINED DISORDER [None]
  - PAIN [None]
  - SKIN DISORDER [None]
  - SKIN LESION [None]
